FAERS Safety Report 9944836 (Version 1)
Quarter: 2014Q1

REPORT INFORMATION
  Report Type: Report from Study
  Country: US (occurrence: US)
  Receive Date: 20140303
  Receipt Date: 20140303
  Transmission Date: 20141002
  Serious: No
  Sender: FDA-Public Use
  Company Number: US-ABBVIE-13P-163-1050375-00

PATIENT
  Age: 37 Year
  Sex: Female

DRUGS (6)
  1. HUMIRA [Suspect]
     Indication: COLITIS ULCERATIVE
     Dates: start: 20130126
  2. HUMIRA [Suspect]
     Indication: COLITIS ULCERATIVE
     Dates: start: 20130209
  3. ASACOL [Concomitant]
     Indication: COLITIS ULCERATIVE
  4. MULTIVITAMIN [Concomitant]
     Indication: PRODUCT USED FOR UNKNOWN INDICATION
     Dosage: DAILY
  5. FLONASE [Concomitant]
     Indication: HYPERSENSITIVITY
     Dosage: DAILY
  6. WYMZYA FE [Concomitant]
     Indication: CONTRACEPTION
     Dosage: PILL DAILY

REACTIONS (2)
  - Fatigue [Recovered/Resolved]
  - Oropharyngeal pain [Recovered/Resolved]
